FAERS Safety Report 17317716 (Version 1)
Quarter: 2020Q1

REPORT INFORMATION
  Report Type: Spontaneous
  Country: US (occurrence: US)
  Receive Date: 20200124
  Receipt Date: 20200124
  Transmission Date: 20200409
  Serious: Yes (Hospitalization, Other)
  Sender: FDA-Public Use
  Company Number: US-OTSUKA-2019_037917

PATIENT
  Age: 54 Year
  Sex: Female

DRUGS (4)
  1. WELLBUTRIN [Concomitant]
     Active Substance: BUPROPION HYDROCHLORIDE
     Indication: PRODUCT USED FOR UNKNOWN INDICATION
     Dosage: UNK
     Route: 065
  2. PRISTIQ EXTENDED-RELEASE [Concomitant]
     Active Substance: DESVENLAFAXINE SUCCINATE
     Indication: PRODUCT USED FOR UNKNOWN INDICATION
     Dosage: UNK
     Route: 065
  3. REXULTI [Suspect]
     Active Substance: BREXPIPRAZOLE
     Indication: ADJUVANT THERAPY
     Dosage: 1 MG, QD
     Route: 048
     Dates: start: 201604, end: 20190910
  4. REXULTI [Suspect]
     Active Substance: BREXPIPRAZOLE
     Indication: MAJOR DEPRESSION

REACTIONS (3)
  - Lacunar stroke [Recovering/Resolving]
  - Balance disorder [Recovering/Resolving]
  - Cerebrovascular accident [Unknown]

NARRATIVE: CASE EVENT DATE: 201909
